FAERS Safety Report 8870234 (Version 2)
Quarter: 2013Q1

REPORT INFORMATION
  Report Type: Spontaneous
  Country: US (occurrence: US)
  Receive Date: 20121026
  Receipt Date: 20130107
  Transmission Date: 20140127
  Serious: Yes (Other)
  Sender: FDA-Public Use
  Company Number: US-ASTRAZENECA-2012SE79951

PATIENT
  Age: 57 Year
  Sex: Female

DRUGS (2)
  1. SEROQUEL [Suspect]
     Route: 048
  2. CRESTOR [Suspect]
     Route: 048

REACTIONS (2)
  - Cerebrovascular accident [Unknown]
  - Myocardial infarction [Unknown]
